FAERS Safety Report 9321668 (Version 2)
Quarter: 2013Q3

REPORT INFORMATION
  Report Type: Spontaneous
  Country: IT (occurrence: IT)
  Receive Date: 20130531
  Receipt Date: 20130709
  Transmission Date: 20140515
  Serious: Yes (Hospitalization)
  Sender: FDA-Public Use
  Company Number: IT-JNJFOC-20130519613

PATIENT
  Age: 81 Year
  Sex: Male
  Weight: 65 kg

DRUGS (14)
  1. REOPRO [Suspect]
     Indication: CORONARY REVASCULARISATION
     Dosage: 3.3 ML/H FOR 12 HOURS
     Route: 042
     Dates: start: 20130424, end: 20130424
  2. REOPRO [Suspect]
     Indication: CORONARY REVASCULARISATION
     Dosage: BOLUS
     Route: 042
     Dates: start: 20130424, end: 20130424
  3. PLAVIX [Suspect]
     Indication: PRODUCT USED FOR UNKNOWN INDICATION
     Route: 065
  4. HEPARIN SODIUM [Suspect]
     Indication: ANGIOPLASTY
     Dosage: 4000+2000
     Route: 065
     Dates: start: 20130424
  5. TICAGRELOR [Suspect]
     Indication: CORONARY REVASCULARISATION
     Route: 065
     Dates: start: 20130423, end: 20130424
  6. ACETYLSALICYLIC ACID [Concomitant]
     Indication: PRODUCT USED FOR UNKNOWN INDICATION
     Route: 065
  7. ACETYLSALICYLIC ACID [Concomitant]
     Indication: PRODUCT USED FOR UNKNOWN INDICATION
     Route: 065
     Dates: start: 20130501
  8. TORVAST [Concomitant]
     Route: 065
  9. MONOKET [Concomitant]
     Route: 065
  10. LOSARTAN [Concomitant]
     Route: 065
  11. PANTORC [Concomitant]
     Route: 065
  12. BISOPROLOL FUMARATE [Concomitant]
     Route: 065
  13. BRILIQUE [Concomitant]
     Route: 065
  14. MORPHINE [Concomitant]
     Indication: ANGIOPLASTY
     Route: 042

REACTIONS (5)
  - Pericardial effusion [Recovered/Resolved with Sequelae]
  - Haematemesis [Recovered/Resolved with Sequelae]
  - Pleural effusion [Recovered/Resolved with Sequelae]
  - Thrombocytopenia [Recovered/Resolved with Sequelae]
  - Epidermolysis [Recovered/Resolved with Sequelae]
